FAERS Safety Report 5110338-0 (Version None)
Quarter: 2006Q3

REPORT INFORMATION
  Report Type: 
  Country: None (occurrence: None)
  Receive Date: 20060731
  Receipt Date: 20060626
  Transmission Date: 20061208
  Serious: No
  Sender: FDA-Public Use
  Company Number: 2006PV016385

PATIENT
  Age: 59 Year
  Sex: Female
  Weight: 156.6 kg

DRUGS (15)
  1. BYETTA [Suspect]
     Indication: DIABETES MELLITUS NON-INSULIN-DEPENDENT
     Dosage: 5 MCG;BID;SC
     Route: 058
     Dates: start: 20060609
  2. FLOVENT [Concomitant]
  3. ALBUTEROL [Concomitant]
  4. TRAZODONE HCL [Concomitant]
  5. SINEMET [Concomitant]
  6. ZYRTEC [Concomitant]
  7. COLESTID [Concomitant]
  8. LISINOPRIL [Concomitant]
  9. ACIPHEX [Concomitant]
  10. EFFEXOR [Concomitant]
  11. DEMADEX [Concomitant]
  12. SINGULAIR [Concomitant]
  13. ASPIRIN [Concomitant]
  14. DIGESTIVE ADVANTAGE [Concomitant]
  15. DIGESTIVE ADVANTAGE FOR LACTOSE [Concomitant]

REACTIONS (4)
  - CONDITION AGGRAVATED [None]
  - FLUID RETENTION [None]
  - PITTING OEDEMA [None]
  - WEIGHT INCREASED [None]
